FAERS Safety Report 13182253 (Version 1)
Quarter: 2017Q1

REPORT INFORMATION
  Report Type: Report from Study
  Country: FR (occurrence: FR)
  Receive Date: 20170202
  Receipt Date: 20170202
  Transmission Date: 20170428
  Serious: Yes (Other)
  Sender: FDA-Public Use
  Company Number: FR-BEH-2013036862

PATIENT
  Age: 48 Year
  Sex: Female
  Weight: 64 kg

DRUGS (4)
  1. HIZENTRA [Suspect]
     Active Substance: HUMAN IMMUNOGLOBULIN G
     Indication: HYPOGAMMAGLOBULINAEMIA
     Dosage: 1 G, RAPID PUSH
     Route: 058
     Dates: start: 201206, end: 201305
  2. HIZENTRA [Suspect]
     Active Substance: HUMAN IMMUNOGLOBULIN G
     Indication: INFECTION
     Dosage: INFUSION PUMP
     Route: 058
     Dates: start: 201305, end: 201306
  3. HIZENTRA [Suspect]
     Active Substance: HUMAN IMMUNOGLOBULIN G
     Dosage: 0.078 G/KG
     Route: 058
  4. HIZENTRA [Suspect]
     Active Substance: HUMAN IMMUNOGLOBULIN G
     Indication: PRIMARY IMMUNODEFICIENCY SYNDROME
     Dosage: 0.015 G/KG/INJECTION, EVERY 6-7 DAYS
     Route: 058
     Dates: start: 20120612

REACTIONS (9)
  - Upper respiratory tract infection [Unknown]
  - Renal colic [Unknown]
  - Injection site erythema [Not Recovered/Not Resolved]
  - Nephrolithiasis [Unknown]
  - Haematuria [Unknown]
  - Renal colic [Not Recovered/Not Resolved]
  - Haematuria [Unknown]
  - Haematuria [Not Recovered/Not Resolved]
  - Renal pain [Unknown]

NARRATIVE: CASE EVENT DATE: 201206
